FAERS Safety Report 9998021 (Version 1)
Quarter: 2014Q1

REPORT INFORMATION
  Report Type: Spontaneous
  Country: US (occurrence: None)
  Receive Date: 20140304
  Receipt Date: 20140304
  Transmission Date: 20141002
  Serious: Yes (Hospitalization, Other)
  Sender: FDA-Public Use
  Company Number: RB-61533-2013

PATIENT
  Age: 27 Year
  Sex: Female

DRUGS (1)
  1. BUPRENORPHINE 8 MG [Suspect]
     Indication: DRUG DEPENDENCE
     Dates: start: 201310

REACTIONS (1)
  - Depression [None]
